FAERS Safety Report 7586830-6 (Version None)
Quarter: 2011Q3

REPORT INFORMATION
  Report Type: 
  Country: None (occurrence: None)
  Receive Date: 20110701
  Receipt Date: 20110623
  Transmission Date: 20111222
  Serious: Yes (Life-Threatening, Hospitalization)
  Sender: FDA-Public Use
  Company Number: UG-ABBOTT-11P-165-0732341-00

PATIENT
  Sex: Female

DRUGS (7)
  1. LOPINAVIR/RITONAVIR [Suspect]
     Indication: HIV INFECTION
     Route: 048
     Dates: start: 20110419
  2. FEFOL [Concomitant]
     Indication: PRODUCT USED FOR UNKNOWN INDICATION
     Dates: start: 20110219
  3. ETHAMBUTOL HYDROCHLORIDE [Concomitant]
     Indication: PRODUCT USED FOR UNKNOWN INDICATION
     Dates: start: 20110219
  4. VITAMIN B COMPLEX CAP [Concomitant]
     Indication: PRODUCT USED FOR UNKNOWN INDICATION
     Dates: start: 20110219
  5. RALTEGRAVIR [Concomitant]
     Indication: HIV INFECTION
     Dates: start: 20110419
  6. SEPTRA [Concomitant]
     Indication: PRODUCT USED FOR UNKNOWN INDICATION
     Dates: start: 20110219
  7. ISONIAZID [Concomitant]
     Indication: PRODUCT USED FOR UNKNOWN INDICATION
     Dates: start: 20110219

REACTIONS (6)
  - PNEUMOTHORAX [None]
  - BREATH SOUNDS ABNORMAL [None]
  - PULMONARY PHYSICAL EXAMINATION ABNORMAL [None]
  - ACTIVITIES OF DAILY LIVING IMPAIRED [None]
  - BREATH SOUNDS ABSENT [None]
  - DYSPNOEA [None]
